FAERS Safety Report 18379750 (Version 1)
Quarter: 2020Q4

REPORT INFORMATION
  Report Type: Spontaneous
  Country: JP (occurrence: JP)
  Receive Date: 20201014
  Receipt Date: 20201014
  Transmission Date: 20210114
  Serious: Yes (Other)
  Sender: FDA-Public Use
  Company Number: JP-REGENERON PHARMACEUTICALS, INC.-2020-82019

PATIENT

DRUGS (2)
  1. EYLEA [Suspect]
     Active Substance: AFLIBERCEPT
     Indication: AGE-RELATED MACULAR DEGENERATION
     Dosage: UNK, Q2MON
     Route: 031
     Dates: start: 202002, end: 202006
  2. EYLEA [Suspect]
     Active Substance: AFLIBERCEPT
     Dosage: UNK, Q1MON
     Route: 031
     Dates: start: 202008

REACTIONS (5)
  - Off label use [Unknown]
  - Product use issue [Unknown]
  - Retinal haemorrhage [Unknown]
  - Visual impairment [Unknown]
  - Blindness [Unknown]

NARRATIVE: CASE EVENT DATE: 202004
